FAERS Safety Report 14147360 (Version 1)
Quarter: 2017Q4

REPORT INFORMATION
  Report Type: Spontaneous
  Country: CA (occurrence: CA)
  Receive Date: 20171101
  Receipt Date: 20171101
  Transmission Date: 20180321
  Serious: Yes (Other)
  Sender: FDA-Public Use
  Company Number: CA-ROCHE-2014915

PATIENT
  Age: 57 Year
  Sex: Female

DRUGS (4)
  1. FENTANYL. [Concomitant]
     Active Substance: FENTANYL
     Indication: PRODUCT USED FOR UNKNOWN INDICATION
     Route: 065
  2. NABILONE [Concomitant]
     Active Substance: NABILONE
     Indication: PRODUCT USED FOR UNKNOWN INDICATION
     Dosage: 2 MG, BID
     Route: 048
  3. MORPHINE [Suspect]
     Active Substance: MORPHINE
     Indication: PRODUCT USED FOR UNKNOWN INDICATION
     Dosage: 60 MG, BID
     Route: 065
  4. XOLAIR [Suspect]
     Active Substance: OMALIZUMAB
     Indication: ASTHMA
     Route: 058
     Dates: start: 20141218

REACTIONS (9)
  - Myocardial infarction [Unknown]
  - Asthma [Not Recovered/Not Resolved]
  - Obstructive airways disorder [Unknown]
  - Cardiac disorder [Unknown]
  - Obesity [Unknown]
  - Forced expiratory volume decreased [Not Recovered/Not Resolved]
  - Hypertension [Recovering/Resolving]
  - Wheezing [Unknown]
  - Throat tightness [Unknown]

NARRATIVE: CASE EVENT DATE: 2015
